FAERS Safety Report 10417381 (Version 2)
Quarter: 2014Q4

REPORT INFORMATION
  Report Type: Report from Study
  Country: DE (occurrence: DE)
  Receive Date: 20140829
  Receipt Date: 20141118
  Transmission Date: 20150528
  Serious: Yes (Death, Hospitalization, Other)
  Sender: FDA-Public Use
  Company Number: DE-009507513-1408USA015432

PATIENT
  Age: 77 Year
  Sex: Female
  Weight: 96.51 kg

DRUGS (5)
  1. DEXAMETHASONE. [Suspect]
     Active Substance: DEXAMETHASONE
     Indication: PROPHYLAXIS
     Dosage: UNKNOWN DOSE AND ROUTE ADMINISTRATION
     Route: 065
     Dates: start: 20140703
  2. L-THYROXIN [Concomitant]
     Active Substance: LEVOTHYROXINE SODIUM
     Indication: HYPOTHYROIDISM
     Dosage: 100 MICROGRAM
     Route: 048
     Dates: end: 20140724
  3. TEMSIROLIMUS [Suspect]
     Active Substance: TEMSIROLIMUS
     Indication: CENTRAL NERVOUS SYSTEM LYMPHOMA
     Dosage: 75 MG, QW
     Route: 065
     Dates: start: 20140612, end: 20140626
  4. PREDNISOLONE. [Concomitant]
     Active Substance: PREDNISOLONE
     Indication: PROPHYLAXIS
     Dosage: 100 MG, DAILY
     Route: 048
     Dates: start: 20140703, end: 20140724
  5. CIPROFLOXACIN. [Concomitant]
     Active Substance: CIPROFLOXACIN
     Indication: PROPHYLAXIS
     Dosage: 500 MG
     Route: 048
     Dates: start: 20140703, end: 20140724

REACTIONS (6)
  - Pneumonitis [Fatal]
  - Hyperglycaemia [Recovered/Resolved]
  - Renal failure [Not Recovered/Not Resolved]
  - Hypovolaemia [Unknown]
  - Dehydration [Unknown]
  - Infection [Unknown]

NARRATIVE: CASE EVENT DATE: 201407
